FAERS Safety Report 11110135 (Version 2)
Quarter: 2015Q4

REPORT INFORMATION
  Report Type: Report from Study
  Country: BR (occurrence: BR)
  Receive Date: 20150513
  Receipt Date: 20151228
  Transmission Date: 20160304
  Serious: Yes (Hospitalization, Other)
  Sender: FDA-Public Use
  Company Number: PHHY2015BR056297

PATIENT
  Age: 82 Year
  Sex: Female
  Weight: 38 kg

DRUGS (4)
  1. AFINITOR [Suspect]
     Active Substance: EVEROLIMUS
     Indication: NEOPLASM MALIGNANT
     Dosage: 10 MG, QD
     Route: 065
     Dates: start: 201503
  2. AFINITOR [Suspect]
     Active Substance: EVEROLIMUS
     Dosage: UNK, QOD
     Route: 065
  3. AFINITOR [Suspect]
     Active Substance: EVEROLIMUS
     Dosage: UNK, QD
     Route: 065
  4. SANDOSTATIN LAR DEPOT [Suspect]
     Active Substance: OCTREOTIDE ACETATE
     Indication: GASTRIC CANCER
     Dosage: 1 DF (30 MG), QMO
     Route: 065
     Dates: start: 201111

REACTIONS (12)
  - Headache [Not Recovered/Not Resolved]
  - Diarrhoea [Unknown]
  - Nail disorder [Unknown]
  - Fall [Not Recovered/Not Resolved]
  - Product use issue [Unknown]
  - Dehydration [Unknown]
  - Head banging [Not Recovered/Not Resolved]
  - Weight decreased [Not Recovered/Not Resolved]
  - Body height decreased [Unknown]
  - Onychomadesis [Unknown]
  - Tooth disorder [Unknown]
  - Blindness [Unknown]

NARRATIVE: CASE EVENT DATE: 201505
